FAERS Safety Report 12941360 (Version 1)
Quarter: 2016Q4

REPORT INFORMATION
  Report Type: Spontaneous
  Country: US (occurrence: US)
  Receive Date: 20161115
  Receipt Date: 20161115
  Transmission Date: 20170207
  Serious: No
  Sender: FDA-Public Use
  Company Number: US-MISSION PHARMACAL COMPANY-1059536

PATIENT
  Age: 20 Year
  Sex: Female

DRUGS (2)
  1. THIOLA [Suspect]
     Active Substance: TIOPRONIN
     Indication: CYSTINURIA
     Route: 048
     Dates: start: 20161019
  2. THIOLA [Suspect]
     Active Substance: TIOPRONIN
     Route: 048
     Dates: start: 20161019

REACTIONS (2)
  - Drug ineffective [Unknown]
  - Drug dose omission [Unknown]
